FAERS Safety Report 4632026-7 (Version None)
Quarter: 2005Q2

REPORT INFORMATION
  Report Type: 
  Country: None (occurrence: None)
  Receive Date: 20050331
  Receipt Date: 20040420
  Transmission Date: 20051028
  Serious: Yes (Death)
  Sender: FDA-Public Use
  Company Number: 200411344GDS

PATIENT
  Age: 29 Year

DRUGS (3)
  1. ASPIRIN [Suspect]
  2. NAPROXEN [Suspect]
  3. ACETAMINOPHEN WITH PROPOXYPHENE HCL TAB [Suspect]

REACTIONS (1)
  - INTENTIONAL MISUSE [None]
